FAERS Safety Report 8764576 (Version 1)
Quarter: 2012Q4

REPORT INFORMATION
  Report Type: 
  Country: US (occurrence: US)
  Receive Date: 20120831
  Receipt Date: 20120831
  Transmission Date: 20130627
  Serious: No
  Sender: FDA-Public Use
  Company Number: US-ASTRAZENECA-2011SE58550

PATIENT
  Age: 61 Year
  Sex: Female

DRUGS (4)
  1. SYMBICORT PMDI [Suspect]
     Route: 055
  2. TOPROL XL [Suspect]
     Route: 048
  3. CRESTOR [Suspect]
     Route: 048
  4. CYMBALTA [Concomitant]

REACTIONS (11)
  - Fibromyalgia [Unknown]
  - Hypertension [Unknown]
  - Blood cholesterol increased [Unknown]
  - Arthritis [Unknown]
  - Gastric disorder [Unknown]
  - Sinus disorder [Unknown]
  - Blood calcium decreased [Unknown]
  - Malaise [Unknown]
  - Depression [Unknown]
  - Dizziness [Unknown]
  - Drug dose omission [Unknown]
